FAERS Safety Report 8222562-9 (Version None)
Quarter: 2012Q1

REPORT INFORMATION
  Report Type: 
  Country: None (occurrence: None)
  Receive Date: 20120320
  Receipt Date: 20120309
  Transmission Date: 20120608
  Serious: Yes (Hospitalization, Other)
  Sender: FDA-Public Use
  Company Number: US-JNJFOC-20120306518

PATIENT
  Sex: Female
  Weight: 53.52 kg

DRUGS (16)
  1. BACTRIM DS [Concomitant]
  2. REQUIP [Concomitant]
  3. CYMBALTA [Suspect]
     Indication: DEPRESSION
     Route: 048
     Dates: start: 20050101
  4. VITRON-C [Concomitant]
  5. ATIVAN [Concomitant]
  6. IBUPROFEN [Concomitant]
  7. FLEXERIL [Suspect]
     Indication: PRODUCT USED FOR UNKNOWN INDICATION
     Route: 065
  8. FOCALIN [Concomitant]
  9. CLONAZEPAM [Concomitant]
  10. INVEGA [Concomitant]
  11. OXYCODONE/ACETAMINOPHEN [Concomitant]
  12. DIPHENHYDRAMINE HCL [Concomitant]
  13. OMEPRAZOLE [Concomitant]
  14. SYNTHROID [Concomitant]
  15. TRAZODONE HCL [Concomitant]
  16. COGENTIN [Concomitant]

REACTIONS (6)
  - NECK PAIN [None]
  - ASTHENIA [None]
  - CARDIOMYOPATHY [None]
  - BIPOLAR DISORDER [None]
  - LOSS OF CONSCIOUSNESS [None]
  - ROAD TRAFFIC ACCIDENT [None]
